FAERS Safety Report 7141517-9 (Version None)
Quarter: 2010Q4

REPORT INFORMATION
  Report Type: 
  Country: None (occurrence: None)
  Receive Date: 20101203
  Receipt Date: 20101203
  Transmission Date: 20110411
  Serious: Yes (Other)
  Sender: FDA-Public Use
  Company Number: None

PATIENT
  Age: 56 Year
  Sex: Female
  Weight: 58.9676 kg

DRUGS (1)
  1. XOLAIR [Suspect]
     Indication: ASTHMA
     Dosage: 3 VIALS 1/MONTH DELIVERED TO DR'S OFFICE
     Dates: start: 20090501, end: 20100901

REACTIONS (2)
  - CHEST PAIN [None]
  - LUNG NEOPLASM [None]
